FAERS Safety Report 4620097-3 (Version None)
Quarter: 2005Q1

REPORT INFORMATION
  Report Type: 
  Country: None (occurrence: None)
  Receive Date: 20050328
  Receipt Date: 20050311
  Transmission Date: 20050727
  Serious: Yes (Hospitalization)
  Sender: FDA-Public Use
  Company Number: FR-BRISTOL-MYERS SQUIBB COMPANY-12899019

PATIENT
  Age: 65 Year
  Sex: Male

DRUGS (10)
  1. ENDOXAN [Suspect]
     Indication: NON-HODGKIN'S LYMPHOMA
     Dosage: INITIATED:  14-MAR-2002 TO 20-APR-2004
     Route: 042
     Dates: start: 20030916, end: 20030916
  2. ROFERON [Suspect]
     Indication: NON-HODGKIN'S LYMPHOMA
     Route: 058
     Dates: start: 20030916, end: 20030916
  3. VINBLASTINE SULFATE [Suspect]
     Indication: NON-HODGKIN'S LYMPHOMA
     Route: 042
     Dates: start: 20030916, end: 20030916
  4. MABTHERA [Suspect]
     Dates: start: 20020314, end: 20030916
  5. FRACTAL [Concomitant]
     Dates: start: 20010101
  6. CARDEGIC [Concomitant]
  7. PRAXILENE [Concomitant]
  8. ESPERAL [Concomitant]
  9. ADRIBLASTINE [Concomitant]
     Dates: start: 20020314, end: 20030916
  10. PREDNISOLONE [Concomitant]
     Dates: start: 20020314, end: 20030316

REACTIONS (4)
  - BRONCHIOLITIS [None]
  - HAEMOPHILUS INFECTION [None]
  - HYPOXIA [None]
  - OBSTRUCTIVE AIRWAYS DISORDER [None]
